FAERS Safety Report 4516545-X (Version None)
Quarter: 2004Q4

REPORT INFORMATION
  Report Type: 
  Country: None (occurrence: None)
  Receive Date: 20041029
  Receipt Date: 20040712
  Transmission Date: 20050328
  Serious: No
  Sender: FDA-Public Use
  Company Number: 2004-118441-NL

PATIENT
  Age: 27 Year
  Sex: Female
  Weight: 86.4 kg

DRUGS (2)
  1. NUVARING [Suspect]
     Indication: MENSTRUAL DISORDER
     Dosage: DF DAILY VAGINAL
     Route: 067
     Dates: start: 20040604
  2. ADVIL [Concomitant]

REACTIONS (3)
  - MEDICAL DEVICE CHANGE [None]
  - METRORRHAGIA [None]
  - VAGINAL CONTRACEPTIVE DEVICE EXPELLED [None]
